FAERS Safety Report 10377817 (Version 1)
Quarter: 2014Q3

REPORT INFORMATION
  Report Type: Spontaneous
  Country: JP (occurrence: JP)
  Receive Date: 20140812
  Receipt Date: 20140812
  Transmission Date: 20150326
  Serious: Yes (Life-Threatening, Hospitalization)
  Sender: FDA-Public Use
  Company Number: JP-JNJFOC-20140809279

PATIENT
  Age: 76 Year
  Sex: Female

DRUGS (16)
  1. ADALAT [Concomitant]
     Active Substance: NIFEDIPINE
     Dosage: 40 DF
     Route: 048
  2. REMICADE [Suspect]
     Active Substance: INFLIXIMAB
     Indication: RHEUMATOID ARTHRITIS
     Route: 042
     Dates: start: 20110304
  3. GASTER [Concomitant]
     Active Substance: FAMOTIDINE
     Dosage: 20 DF
     Route: 048
  4. REMICADE [Suspect]
     Active Substance: INFLIXIMAB
     Indication: RHEUMATOID ARTHRITIS
     Route: 042
     Dates: start: 20110528
  5. REMICADE [Suspect]
     Active Substance: INFLIXIMAB
     Indication: RHEUMATOID ARTHRITIS
     Dosage: 20TH DOSE
     Route: 042
     Dates: start: 20131018, end: 20131207
  6. METHOTREXATE [Concomitant]
     Active Substance: METHOTREXATE
     Indication: RHEUMATOID ARTHRITIS
     Route: 048
  7. REMICADE [Suspect]
     Active Substance: INFLIXIMAB
     Indication: RHEUMATOID ARTHRITIS
     Route: 042
     Dates: start: 20121012
  8. REMICADE [Suspect]
     Active Substance: INFLIXIMAB
     Indication: RHEUMATOID ARTHRITIS
     Route: 042
     Dates: start: 20111112
  9. ONEALFA [Concomitant]
     Active Substance: ALFACALCIDOL
     Dosage: 5 DF
     Route: 048
  10. LOXONIN [Concomitant]
     Active Substance: LOXOPROFEN SODIUM
     Dosage: 120 DF
     Route: 048
  11. REMICADE [Suspect]
     Active Substance: INFLIXIMAB
     Indication: RHEUMATOID ARTHRITIS
     Route: 042
     Dates: start: 20110401
  12. REMICADE [Suspect]
     Active Substance: INFLIXIMAB
     Indication: RHEUMATOID ARTHRITIS
     Route: 042
     Dates: start: 20110722
  13. REMICADE [Suspect]
     Active Substance: INFLIXIMAB
     Indication: RHEUMATOID ARTHRITIS
     Route: 042
     Dates: start: 20110917
  14. REMICADE [Suspect]
     Active Substance: INFLIXIMAB
     Indication: RHEUMATOID ARTHRITIS
     Route: 042
     Dates: start: 20110218
  15. MUCOSTA [Concomitant]
     Active Substance: REBAMIPIDE
     Dosage: 300 DF
     Route: 048
  16. PURSENNID [Concomitant]
     Active Substance: SENNOSIDES A AND B CALCIUM
     Dosage: 2 DF
     Route: 048

REACTIONS (4)
  - Metastases to liver [Unknown]
  - Hepatic cancer [Recovered/Resolved]
  - Hepatitis [Recovered/Resolved]
  - Colon cancer [Recovered/Resolved]

NARRATIVE: CASE EVENT DATE: 2013
